FAERS Safety Report 18118444 (Version 2)
Quarter: 2020Q3

REPORT INFORMATION
  Report Type: Spontaneous
  Country: US (occurrence: US)
  Receive Date: 20200806
  Receipt Date: 20200817
  Transmission Date: 20201103
  Serious: Yes (Death, Hospitalization, Other)
  Sender: FDA-Public Use
  Company Number: US-BRISTOL-MYERS SQUIBB COMPANY-BMS-2020-063099

PATIENT
  Sex: Male

DRUGS (8)
  1. WARFARIN SODIUM. [Suspect]
     Active Substance: WARFARIN SODIUM
     Indication: HEART VALVE REPLACEMENT
  2. VITAMIN B12 [Concomitant]
     Active Substance: CYANOCOBALAMIN
     Indication: COELIAC DISEASE
  3. FOLIC ACID. [Concomitant]
     Active Substance: FOLIC ACID
     Indication: PERNICIOUS ANAEMIA
     Route: 065
  4. COUMADIN [Suspect]
     Active Substance: WARFARIN SODIUM
     Indication: CORONARY ARTERY BYPASS
     Route: 065
  5. VITAMIN B12 [Concomitant]
     Active Substance: CYANOCOBALAMIN
     Indication: PERNICIOUS ANAEMIA
     Route: 065
  6. WARFARIN SODIUM. [Suspect]
     Active Substance: WARFARIN SODIUM
     Indication: CORONARY ARTERY BYPASS
     Route: 065
  7. COUMADIN [Suspect]
     Active Substance: WARFARIN SODIUM
     Indication: HEART VALVE REPLACEMENT
  8. FOLIC ACID. [Concomitant]
     Active Substance: FOLIC ACID
     Indication: COELIAC DISEASE

REACTIONS (10)
  - Blood pressure abnormal [Unknown]
  - Internal haemorrhage [Fatal]
  - Haematoma [Unknown]
  - Spinal fracture [Unknown]
  - Overweight [Unknown]
  - Asthenia [Unknown]
  - Fall [Fatal]
  - Rib fracture [Unknown]
  - Respiratory fume inhalation disorder [Unknown]
  - Cardiac disorder [Unknown]
